FAERS Safety Report 18198661 (Version 1)
Quarter: 2020Q3

REPORT INFORMATION
  Report Type: Spontaneous
  Country: DE (occurrence: DE)
  Receive Date: 20200826
  Receipt Date: 20200826
  Transmission Date: 20201103
  Serious: Yes (Other)
  Sender: FDA-Public Use
  Company Number: NVSC2020DE224031

PATIENT
  Age: 69 Year
  Sex: Male

DRUGS (9)
  1. MYCOPHENOLATE MOFETIL. [Suspect]
     Active Substance: MYCOPHENOLATE MOFETIL
     Indication: PEMPHIGUS
     Dosage: 2 G, QD
     Route: 065
     Dates: start: 201111, end: 201302
  2. RITUXIMAB. [Suspect]
     Active Substance: RITUXIMAB
     Dosage: 2 CYCLES  CUMULATIVE DOSE 3.6 G
     Route: 065
     Dates: start: 201404
  3. CYCLOPHOSPHAMIDE. [Suspect]
     Active Substance: CYCLOPHOSPHAMIDE
     Indication: PEMPHIGUS
     Dosage: UNK, CYCLIC 2 CYCLES
     Route: 065
     Dates: start: 201303
  4. AZATHIOPRINE. [Suspect]
     Active Substance: AZATHIOPRINE
     Indication: PEMPHIGUS
     Dosage: UNK
     Route: 065
     Dates: start: 201012, end: 201110
  5. MYCOPHENOLATE MOFETIL. [Suspect]
     Active Substance: MYCOPHENOLATE MOFETIL
     Dosage: 2.5 G, QD
     Route: 065
     Dates: start: 201302, end: 201303
  6. RITUXIMAB. [Suspect]
     Active Substance: RITUXIMAB
     Indication: PEMPHIGUS
     Dosage: 375 MG/M2
     Route: 042
     Dates: start: 201506, end: 201512
  7. PREDNISOLONE. [Suspect]
     Active Substance: PREDNISOLONE
     Indication: PEMPHIGUS
     Dosage: 5?7.5 MG
     Route: 065
  8. PREDNISOLONE. [Suspect]
     Active Substance: PREDNISOLONE
     Dosage: 20?25 MG/DAY
     Route: 065
     Dates: start: 201801
  9. MYCOPHENOLATE MOFETIL. [Suspect]
     Active Substance: MYCOPHENOLATE MOFETIL
     Dosage: 2.5 G, QD
     Route: 065
     Dates: start: 201304, end: 201803

REACTIONS (3)
  - Human papilloma virus test positive [Unknown]
  - Oropharyngeal squamous cell carcinoma [Recovered/Resolved]
  - Dysphagia [Unknown]

NARRATIVE: CASE EVENT DATE: 2018
